FAERS Safety Report 24896224 (Version 2)
Quarter: 2025Q1

REPORT INFORMATION
  Report Type: Spontaneous
  Country: US (occurrence: US)
  Receive Date: 20250128
  Receipt Date: 20250224
  Transmission Date: 20250409
  Serious: Yes (Hospitalization)
  Sender: NEUROCRINE BIOSCIENCES
  Company Number: US-NEUROCRINE BIOSCIENCES INC.-2025NBI00545

PATIENT
  Age: 70 Year
  Sex: Male

DRUGS (2)
  1. INGREZZA [Suspect]
     Active Substance: VALBENAZINE
     Indication: Tardive dyskinesia
     Route: 065
     Dates: start: 2024, end: 2024
  2. INGREZZA [Suspect]
     Active Substance: VALBENAZINE
     Route: 065
     Dates: start: 20250106

REACTIONS (3)
  - Hospitalisation [Recovered/Resolved]
  - Drooling [Recovered/Resolved]
  - Tremor [Recovered/Resolved]

NARRATIVE: CASE EVENT DATE: 20241128
